FAERS Safety Report 8889431 (Version 1)
Quarter: 2012Q4

REPORT INFORMATION
  Report Type: Spontaneous
  Country: US (occurrence: None)
  Receive Date: 20121102
  Receipt Date: 20121102
  Transmission Date: 20130627
  Serious: Yes (Hospitalization)
  Sender: FDA-Public Use
  Company Number: None

PATIENT
  Age: 54 Year
  Sex: Female
  Weight: 73.94 kg

DRUGS (4)
  1. PURITAN [Suspect]
     Indication: NEUROPATHY
     Route: 048
     Dates: start: 20120816, end: 20121018
  2. PURITAN [Suspect]
     Indication: PROPHYLAXIS
     Route: 048
     Dates: start: 20120816, end: 20121018
  3. PURITAN [Suspect]
     Indication: NEUROPATHY
     Dosage: formula #1
     Route: 048
     Dates: start: 20120816, end: 20121018
  4. PURITAN [Suspect]
     Indication: PROPHYLAXIS
     Dosage: formula #1
     Route: 048
     Dates: start: 20120816, end: 20121018

REACTIONS (1)
  - Pneumonitis [None]
